FAERS Safety Report 7882240-2 (Version None)
Quarter: 2011Q4

REPORT INFORMATION
  Report Type: 
  Country: None (occurrence: None)
  Receive Date: 20111101
  Receipt Date: 20110610
  Transmission Date: 20120403
  Serious: No
  Sender: FDA-Public Use
  Company Number: US-AMGEN-USASP2011029973

PATIENT
  Sex: Female

DRUGS (2)
  1. PREDNISONE [Concomitant]
     Dates: start: 20110401, end: 20110101
  2. ENBREL [Suspect]
     Indication: PRODUCT USED FOR UNKNOWN INDICATION
     Dosage: 50 MG, QWK
     Dates: start: 20110401

REACTIONS (2)
  - OROPHARYNGEAL PAIN [None]
  - SWELLING FACE [None]
